FAERS Safety Report 5324953-2 (Version None)
Quarter: 2007Q2

REPORT INFORMATION
  Report Type: 
  Country: None (occurrence: None)
  Receive Date: 20070510
  Receipt Date: 20070510
  Transmission Date: 20071010
  Serious: No
  Sender: FDA-Public Use
  Company Number: None

PATIENT
  Age: 57 Year
  Sex: Female
  Weight: 57.6068 kg

DRUGS (2)
  1. LEVAQUIN [Suspect]
     Indication: BACTERIAL INFECTION
     Dosage: 1 DAILY PO
     Route: 048
     Dates: start: 20070417, end: 20070422
  2. LEVAQUIN [Suspect]
     Indication: BACTERIAL INFECTION
     Dosage: 1 DAILY PO
     Route: 048
     Dates: start: 20070423, end: 20070507

REACTIONS (8)
  - ARTHRALGIA [None]
  - DISCOMFORT [None]
  - INSOMNIA [None]
  - MUSCULOSKELETAL PAIN [None]
  - NECK PAIN [None]
  - PAIN [None]
  - PAIN IN EXTREMITY [None]
  - PAIN IN JAW [None]
